FAERS Safety Report 22029545 (Version 1)
Quarter: 2023Q1

REPORT INFORMATION
  Report Type: Spontaneous
  Country: US (occurrence: US)
  Receive Date: 20230223
  Receipt Date: 20230223
  Transmission Date: 20230418
  Serious: No
  Sender: FDA-Public Use
  Company Number: US-PFIZER INC-PV202300032200

PATIENT
  Age: 56 Year
  Sex: Female

DRUGS (2)
  1. CABERGOLINE [Suspect]
     Active Substance: CABERGOLINE
  2. BROMOCRIPTINE [Suspect]
     Active Substance: BROMOCRIPTINE

REACTIONS (1)
  - Drug ineffective [Unknown]
